FAERS Safety Report 4290176-1 (Version None)
Quarter: 2004Q1

REPORT INFORMATION
  Report Type: 
  Country: None (occurrence: None)
  Receive Date: 20040209
  Receipt Date: 20040128
  Transmission Date: 20041129
  Serious: Yes (Death, Hospitalization)
  Sender: FDA-Public Use
  Company Number: US-JNJFOC-20031201386

PATIENT
  Age: 83 Year
  Sex: Male
  Weight: 78.0187 kg

DRUGS (3)
  1. REOPRO [Suspect]
     Indication: ACUTE MYOCARDIAL INFARCTION
     Dosage: SEE IMAGE
     Dates: start: 20031111, end: 20031111
  2. HEPARIN [Concomitant]
  3. ANGIOMAX [Concomitant]

REACTIONS (3)
  - ACUTE MYOCARDIAL INFARCTION [None]
  - RENAL FAILURE [None]
  - THROMBOCYTOPENIA [None]
